FAERS Safety Report 19685410 (Version 1)
Quarter: 2021Q3

REPORT INFORMATION
  Report Type: Spontaneous
  Country: US (occurrence: US)
  Receive Date: 20210811
  Receipt Date: 20210811
  Transmission Date: 20211014
  Serious: No
  Sender: FDA-Public Use
  Company Number: None

PATIENT
  Age: 66 Year
  Sex: Male

DRUGS (1)
  1. ABIRATERONE TAB 250MG [Suspect]
     Active Substance: ABIRATERONE
     Dosage: ?          OTHER DOSE:1000;?
     Route: 048
     Dates: start: 202011

REACTIONS (3)
  - Tenderness [None]
  - Liver disorder [None]
  - Pain [None]

NARRATIVE: CASE EVENT DATE: 20210806
